FAERS Safety Report 4683693-3 (Version None)
Quarter: 2005Q2

REPORT INFORMATION
  Report Type: 
  Country: None (occurrence: None)
  Receive Date: 20050602
  Receipt Date: 20050224
  Transmission Date: 20051028
  Serious: No
  Sender: FDA-Public Use
  Company Number: 200510337BWH

PATIENT
  Age: 64 Year
  Sex: Male

DRUGS (3)
  1. LEVITRA [Suspect]
     Dosage: 10 MG, PRN, ORAL,20 MG TOTAL DAILY
     Route: 048
  2. . [Concomitant]
  3. MEDICATION FOR DIABETES [Concomitant]

REACTIONS (1)
  - DRUG INEFFECTIVE [None]
